FAERS Safety Report 8291269-4 (Version None)
Quarter: 2012Q2

REPORT INFORMATION
  Report Type: 
  Country: None (occurrence: None)
  Receive Date: 20120413
  Receipt Date: 20120331
  Transmission Date: 20120825
  Serious: Yes (Other)
  Sender: FDA-Public Use
  Company Number: 2012AP000922

PATIENT
  Age: 7 Year
  Sex: Male

DRUGS (5)
  1. DACLIZUMAB [Concomitant]
  2. TACROLIMUS [Suspect]
     Indication: IMMUNOSUPPRESSION
     Dosage: 0.3 MG/KG;QD
  3. MYCOPHENOLATE MOFETIL [Suspect]
     Indication: IMMUNOSUPPRESSION
  4. METHYLPREDNISOLONE [Concomitant]
  5. SODIUM SUCCINATE [Concomitant]

REACTIONS (4)
  - KIDNEY TRANSPLANT REJECTION [None]
  - VIRAEMIA [None]
  - VIRAL TEST POSITIVE [None]
  - BK VIRUS INFECTION [None]
